FAERS Safety Report 4306550-0 (Version None)
Quarter: 2004Q1

REPORT INFORMATION
  Report Type: 
  Country: None (occurrence: None)
  Receive Date: 20040225
  Receipt Date: 20030922
  Transmission Date: 20041129
  Serious: Yes (Other)
  Sender: FDA-Public Use
  Company Number: US-BRISTOL-MYERS SQUIBB COMPANY-12390282

PATIENT
  Sex: Male

DRUGS (1)
  1. EXCEDRIN TABS [Suspect]
     Dosage: DOSE: 40 TABLETS
     Route: 048

REACTIONS (3)
  - ACCIDENTAL EXPOSURE [None]
  - HEART RATE INCREASED [None]
  - OVERDOSE [None]
